FAERS Safety Report 18747296 (Version 1)
Quarter: 2021Q1

REPORT INFORMATION
  Report Type: Spontaneous
  Country: US (occurrence: US)
  Receive Date: 20210115
  Receipt Date: 20210115
  Transmission Date: 20210419
  Serious: Yes (Other)
  Sender: FDA-Public Use
  Company Number: US-ASTRAZENECA-2021A004301

PATIENT
  Age: 27829 Day
  Sex: Male
  Weight: 88.9 kg

DRUGS (2)
  1. DILTIAZAM [Concomitant]
     Route: 065
  2. FASENRA [Suspect]
     Active Substance: BENRALIZUMAB
     Indication: ASTHMA
     Dosage: EVERY 2 MONTHS
     Route: 058

REACTIONS (5)
  - Heart rate decreased [Unknown]
  - COVID-19 [Unknown]
  - Product dose omission issue [Unknown]
  - Sinus disorder [Not Recovered/Not Resolved]
  - Loss of consciousness [Unknown]

NARRATIVE: CASE EVENT DATE: 20201124
